FAERS Safety Report 20203549 (Version 1)
Quarter: 2021Q4

REPORT INFORMATION
  Report Type: Spontaneous
  Country: CA (occurrence: CA)
  Receive Date: 20211219
  Receipt Date: 20211219
  Transmission Date: 20220303
  Serious: Yes (Other)
  Sender: FDA-Public Use
  Company Number: CA-JNJFOC-20211205675

PATIENT
  Age: 35 Year
  Sex: Female
  Weight: 84 kg

DRUGS (3)
  1. INFLIXIMAB [Suspect]
     Active Substance: INFLIXIMAB
     Indication: Colitis ulcerative
     Route: 042
  2. MESALAMINE [Concomitant]
     Active Substance: MESALAMINE
  3. PREDNISONE [Concomitant]
     Active Substance: PREDNISONE

REACTIONS (5)
  - Infusion site pain [Not Recovered/Not Resolved]
  - Condition aggravated [Not Recovered/Not Resolved]
  - Therapy non-responder [Not Recovered/Not Resolved]
  - Intentional product use issue [Not Recovered/Not Resolved]
  - Off label use [Not Recovered/Not Resolved]
